FAERS Safety Report 19839358 (Version 1)
Quarter: 2021Q3

REPORT INFORMATION
  Report Type: Other
  Country: GB (occurrence: GB)
  Receive Date: 20210916
  Receipt Date: 20210916
  Transmission Date: 20211014
  Serious: Yes (Other)
  Sender: FDA-Public Use
  Company Number: GB-ROCHE-2906503

PATIENT

DRUGS (1)
  1. MYCOPHENOLATE MOFETIL. [Suspect]
     Active Substance: MYCOPHENOLATE MOFETIL
     Indication: IMMUNE THROMBOCYTOPENIA
     Dosage: DOSE OF 500 MG TWICE DAILY (ALONG WITH A GLUCOCORTICOID) FOR 2 WEEKS, AT WHICH TIME THE DOSE WAS INC
     Route: 065

REACTIONS (12)
  - Diarrhoea [Unknown]
  - Pulmonary embolism [Unknown]
  - Pneumonia [Unknown]
  - Haemorrhage intracranial [Unknown]
  - Vertigo [Unknown]
  - Fall [Unknown]
  - Platelet count decreased [Unknown]
  - Headache [Unknown]
  - Colitis ulcerative [Unknown]
  - Cardiac failure [Unknown]
  - Arthralgia [Unknown]
  - Urinary tract infection [Unknown]
